FAERS Safety Report 18658849 (Version 1)
Quarter: 2020Q4

REPORT INFORMATION
  Report Type: Spontaneous
  Country: US (occurrence: US)
  Receive Date: 20201224
  Receipt Date: 20201224
  Transmission Date: 20210114
  Serious: No
  Sender: FDA-Public Use
  Company Number: US-BIOVITRUM-2020US7759

PATIENT
  Sex: Male
  Weight: 9 kg

DRUGS (8)
  1. SYNAGIS [Suspect]
     Active Substance: PALIVIZUMAB
     Indication: PULMONARY HYPOPLASIA
  2. FLOVENT DISKUS [Concomitant]
     Active Substance: FLUTICASONE PROPIONATE
     Dosage: 100 MCG BLST W/DEV
  3. SYNAGIS [Suspect]
     Active Substance: PALIVIZUMAB
     Indication: DYSPLASIA
  4. EPINEPHRINE HCL [Concomitant]
     Active Substance: EPINEPHRINE
  5. NYSTATIN-TRIAMCINOLONE [Concomitant]
  6. SYNAGIS [Suspect]
     Active Substance: PALIVIZUMAB
     Indication: PULMONARY HYPERTENSION
  7. SYNAGIS [Suspect]
     Active Substance: PALIVIZUMAB
     Indication: CONGENITAL DIAPHRAGMATIC HERNIA
     Route: 030
     Dates: start: 20191202
  8. ALBUTEROL SULFATE. [Concomitant]
     Active Substance: ALBUTEROL SULFATE

REACTIONS (3)
  - Infection [Unknown]
  - Rash [Unknown]
  - Off label use [Unknown]
